FAERS Safety Report 4406877-8 (Version None)
Quarter: 2004Q3

REPORT INFORMATION
  Report Type: 
  Country: None (occurrence: None)
  Receive Date: 20040723
  Receipt Date: 20030930
  Transmission Date: 20050211
  Serious: Yes (Death, Hospitalization, Other)
  Sender: FDA-Public Use
  Company Number: US-MERCK-0309USA03342

PATIENT
  Age: 61 Year
  Sex: Male
  Weight: 92 kg

DRUGS (9)
  1. NEURONTIN [Concomitant]
     Indication: CONVULSION
     Route: 065
  2. GLUCOSAMINE [Concomitant]
     Indication: OSTEOARTHRITIS
     Route: 065
  3. PRILOSEC [Concomitant]
     Indication: GASTROOESOPHAGEAL REFLUX DISEASE
     Route: 065
  4. VIOXX [Suspect]
     Indication: OSTEOARTHRITIS
     Route: 048
     Dates: start: 20010912, end: 20011220
  5. VIOXX [Suspect]
     Route: 048
     Dates: start: 20011220, end: 20020101
  6. VIOXX [Suspect]
     Route: 048
     Dates: start: 20020101
  7. VIOXX [Suspect]
     Indication: ARTHRALGIA
     Route: 048
     Dates: start: 20010912, end: 20011220
  8. VIOXX [Suspect]
     Route: 048
     Dates: start: 20011220, end: 20020101
  9. VIOXX [Suspect]
     Route: 048
     Dates: start: 20020101

REACTIONS (92)
  - ACQUIRED CARDIAC SEPTAL DEFECT [None]
  - ACTIVATED PARTIAL THROMBOPLASTIN TIME PROLONGED [None]
  - ACUTE MYOCARDIAL INFARCTION [None]
  - AMNESIA [None]
  - APNOEA [None]
  - ARRHYTHMIA [None]
  - ASTHENIA [None]
  - ATRIOVENTRICULAR BLOCK [None]
  - BALANCE DISORDER [None]
  - BENIGN PROSTATIC HYPERPLASIA [None]
  - BLOOD OSMOLARITY INCREASED [None]
  - CARDIAC FAILURE CONGESTIVE [None]
  - CARDIAC MURMUR [None]
  - CAROTID ARTERY STENOSIS [None]
  - CEREBELLAR SYNDROME [None]
  - CEREBRAL HAEMORRHAGE [None]
  - CEREBRAL ISCHAEMIA [None]
  - CEREBROVASCULAR ACCIDENT [None]
  - CHEST PAIN [None]
  - COAGULOPATHY [None]
  - COLD SWEAT [None]
  - COMA [None]
  - CONFUSIONAL STATE [None]
  - CONVULSION [None]
  - CORONARY ARTERY DISEASE [None]
  - CORONARY ARTERY THROMBOSIS [None]
  - DEAFNESS NEUROSENSORY [None]
  - DEHYDRATION [None]
  - DEPRESSION [None]
  - DIABETES MELLITUS [None]
  - DISSEMINATED INTRAVASCULAR COAGULATION [None]
  - DIZZINESS [None]
  - DYSPHAGIA [None]
  - DYSPNOEA [None]
  - EJECTION FRACTION DECREASED [None]
  - EMBOLIC CEREBRAL INFARCTION [None]
  - FALL [None]
  - FATIGUE [None]
  - FIBROUS HISTIOCYTOMA [None]
  - FLATULENCE [None]
  - GASTRITIS HAEMORRHAGIC [None]
  - HAEMATOMA [None]
  - HAEMODIALYSIS [None]
  - HAEMODYNAMIC INSTABILITY [None]
  - HEADACHE [None]
  - HIATUS HERNIA [None]
  - HYPERHIDROSIS [None]
  - HYPERMETROPIA [None]
  - HYPERTENSION [None]
  - HYPOAESTHESIA [None]
  - INNER EAR DISORDER [None]
  - INSOMNIA [None]
  - INTRACRANIAL PRESSURE INCREASED [None]
  - INTRAVENTRICULAR HAEMORRHAGE [None]
  - LEUKOCYTOSIS [None]
  - LIMB DISCOMFORT [None]
  - LOSS OF CONSCIOUSNESS [None]
  - METABOLIC DISORDER [None]
  - MITRAL VALVE INCOMPETENCE [None]
  - MULTI-ORGAN FAILURE [None]
  - MYOCARDIAL INFARCTION [None]
  - NAUSEA [None]
  - NECK PAIN [None]
  - NON-CARDIAC CHEST PAIN [None]
  - OEDEMA [None]
  - OEDEMA PERIPHERAL [None]
  - PLATELET COUNT DECREASED [None]
  - PNEUMONIA ESCHERICHIA [None]
  - POST PROCEDURAL COMPLICATION [None]
  - PRESBYOPIA [None]
  - PROTHROMBIN TIME PROLONGED [None]
  - PUPILLARY DISORDER [None]
  - REFRACTION DISORDER [None]
  - RENAL FAILURE [None]
  - RESPIRATORY FAILURE [None]
  - RESTLESSNESS [None]
  - SCAR [None]
  - SEPSIS [None]
  - SLEEP APNOEA SYNDROME [None]
  - SUBARACHNOID HAEMORRHAGE [None]
  - SYNCOPE [None]
  - TRANSIENT ISCHAEMIC ATTACK [None]
  - TREMOR [None]
  - TRICUSPID VALVE INCOMPETENCE [None]
  - VARICOSE VEIN [None]
  - VENTRICLE RUPTURE [None]
  - VENTRICULAR DYSFUNCTION [None]
  - VENTRICULAR TACHYCARDIA [None]
  - VERTIGO POSITIONAL [None]
  - VISION BLURRED [None]
  - VISUAL DISTURBANCE [None]
  - VOMITING [None]
